FAERS Safety Report 19080445 (Version 1)
Quarter: 2021Q2

REPORT INFORMATION
  Report Type: Spontaneous
  Country: US (occurrence: US)
  Receive Date: 20210401
  Receipt Date: 20210401
  Transmission Date: 20210717
  Serious: Yes (Other)
  Sender: FDA-Public Use
  Company Number: US-BEH-2021129962

PATIENT
  Sex: Female

DRUGS (1)
  1. HIZENTRA [Suspect]
     Active Substance: HUMAN IMMUNOGLOBULIN G
     Indication: HYPOGAMMAGLOBULINAEMIA
     Dosage: 17 GRAM, QOW, 8 GRAMS (40ML) ON DAY 1 AND 9 GRAMS ON DAY 2 (45 ML)
     Route: 058
     Dates: start: 202009

REACTIONS (2)
  - Neoplasm malignant [Unknown]
  - Dyspnoea [Unknown]
